FAERS Safety Report 13987684 (Version 2)
Quarter: 2017Q4

REPORT INFORMATION
  Report Type: Spontaneous
  Country: PL (occurrence: PL)
  Receive Date: 20170919
  Receipt Date: 20171013
  Transmission Date: 20180321
  Serious: Yes (Other)
  Sender: FDA-Public Use
  Company Number: PL-PFIZER INC-2017400315

PATIENT
  Age: 51 Year
  Sex: Male

DRUGS (2)
  1. SUTENT [Suspect]
     Active Substance: SUNITINIB MALATE
     Dosage: 25 MG, DAILY
     Dates: end: 2017
  2. SUTENT [Suspect]
     Active Substance: SUNITINIB MALATE
     Indication: METASTATIC RENAL CELL CARCINOMA
     Dosage: UNK
     Dates: start: 201310

REACTIONS (6)
  - Hypothyroidism [Unknown]
  - Gastrointestinal haemorrhage [Unknown]
  - Cholecystitis [Unknown]
  - Neoplasm progression [Unknown]
  - Thrombocytopenia [Unknown]
  - Cholelithiasis [Unknown]
